FAERS Safety Report 8168315-1 (Version None)
Quarter: 2012Q1

REPORT INFORMATION
  Report Type: 
  Country: None (occurrence: None)
  Receive Date: 20120222
  Receipt Date: 20120215
  Transmission Date: 20120608
  Serious: Yes (Hospitalization)
  Sender: FDA-Public Use
  Company Number: AUR-APL-2012-00840

PATIENT
  Age: 70 Year
  Sex: Male

DRUGS (6)
  1. CYCLOBENZAPRINE [Concomitant]
  2. PROTONIX [Concomitant]
  3. ZOLPIDEM [Suspect]
     Indication: PRODUCT USED FOR UNKNOWN INDICATION
     Dosage: (10 MG, 1 D), ORAL
     Route: 048
  4. RANITIDINE HYDROCHLORIDE [Concomitant]
  5. LOSARTAN POTASSIUM [Concomitant]
  6. METHADONE HCL [Concomitant]

REACTIONS (3)
  - AMNESIA [None]
  - CONVULSION [None]
  - INTRACARDIAC THROMBUS [None]
